FAERS Safety Report 14246750 (Version 12)
Quarter: 2022Q2

REPORT INFORMATION
  Report Type: Spontaneous
  Country: US (occurrence: US)
  Receive Date: 20171204
  Receipt Date: 20220607
  Transmission Date: 20220721
  Serious: Yes (Hospitalization, Disabling, Other)
  Sender: FDA-Public Use
  Company Number: US-PFIZER INC-2017514798

PATIENT
  Age: 82 Year
  Sex: Female
  Weight: 73 kg

DRUGS (4)
  1. XELJANZ XR [Suspect]
     Active Substance: TOFACITINIB CITRATE
     Indication: Rheumatoid arthritis
     Dosage: 11 MG, 1X/DAY
     Route: 048
  2. XELJANZ XR [Suspect]
     Active Substance: TOFACITINIB CITRATE
     Dosage: 11 MG, 1X/DAY
     Route: 048
  3. XELJANZ XR [Suspect]
     Active Substance: TOFACITINIB CITRATE
     Dosage: 11 MG, 1X/DAY
     Route: 048
  4. LANTUS [Concomitant]
     Active Substance: INSULIN GLARGINE
     Dosage: UNK

REACTIONS (22)
  - Pelvic fracture [Unknown]
  - Stress fracture [Unknown]
  - Lung disorder [Unknown]
  - Pulmonary fibrosis [Unknown]
  - Interstitial lung disease [Unknown]
  - Spinal operation [Unknown]
  - Mental impairment [Unknown]
  - Back pain [Not Recovered/Not Resolved]
  - Pain in extremity [Recovering/Resolving]
  - Arthralgia [Recovering/Resolving]
  - Myalgia [Recovering/Resolving]
  - Weight decreased [Recovering/Resolving]
  - Fall [Unknown]
  - Feeling abnormal [Unknown]
  - Pain [Unknown]
  - Hypoacusis [Unknown]
  - Peripheral swelling [Unknown]
  - Arterial disorder [Unknown]
  - General physical health deterioration [Unknown]
  - Depression [Unknown]
  - Fatigue [Unknown]
  - Cystitis [Unknown]

NARRATIVE: CASE EVENT DATE: 20171127
